FAERS Safety Report 10188915 (Version 1)
Quarter: 2014Q2

REPORT INFORMATION
  Report Type: Spontaneous
  Country: US (occurrence: US)
  Receive Date: 20140522
  Receipt Date: 20140522
  Transmission Date: 20141212
  Serious: No
  Sender: FDA-Public Use
  Company Number: US-PFIZER INC-2014138630

PATIENT
  Age: 61 Year
  Sex: Female
  Weight: 58.9 kg

DRUGS (2)
  1. TOLTERODINE TARTRATE [Suspect]
     Dosage: UNK
     Dates: start: 20140416
  2. CLIMARA [Concomitant]
     Dosage: UNK

REACTIONS (1)
  - Drug ineffective [Unknown]
